FAERS Safety Report 6673999-0 (Version None)
Quarter: 2010Q2

REPORT INFORMATION
  Report Type: 
  Country: None (occurrence: None)
  Receive Date: 20100409
  Receipt Date: 20100304
  Transmission Date: 20101027
  Serious: No
  Sender: FDA-Public Use
  Company Number: A0848353A

PATIENT
  Age: 15 Year
  Sex: Male

DRUGS (2)
  1. EXTINA [Suspect]
     Indication: DERMATOSIS
     Dosage: 1APP TWICE PER DAY
     Route: 061
     Dates: start: 20100303
  2. TAZORAC [Concomitant]

REACTIONS (2)
  - APPLICATION SITE PAIN [None]
  - EXPIRED DRUG ADMINISTERED [None]
